FAERS Safety Report 8551329-7 (Version None)
Quarter: 2012Q3

REPORT INFORMATION
  Report Type: 
  Country: None (occurrence: None)
  Receive Date: 20120730
  Receipt Date: 20120227
  Transmission Date: 20120928
  Serious: No
  Sender: FDA-Public Use
  Company Number: US-ALLERGAN-1201665US

PATIENT
  Sex: Female

DRUGS (4)
  1. LATISSE [Suspect]
     Dosage: 2 GTT, UNK
     Route: 061
     Dates: start: 20120207
  2. LATISSE [Suspect]
     Indication: HYPOTRICHOSIS
     Dosage: 2 GTT, QHS
     Route: 061
     Dates: start: 20120101
  3. EYE CREAM AROUND SKIN OF EYES [Concomitant]
     Indication: PRODUCT USED FOR UNKNOWN INDICATION
  4. EYELASH CURLER [Concomitant]

REACTIONS (3)
  - SKIN DISCOLOURATION [None]
  - MADAROSIS [None]
  - MILIA [None]
